FAERS Safety Report 23839726 (Version 1)
Quarter: 2024Q2

REPORT INFORMATION
  Report Type: Spontaneous
  Country: ES (occurrence: ES)
  Receive Date: 20240510
  Receipt Date: 20240510
  Transmission Date: 20240716
  Serious: Yes (Hospitalization, Other)
  Sender: FDA-Public Use
  Company Number: ES-AEMPS-1508294

PATIENT
  Age: 67 Year
  Sex: Female

DRUGS (3)
  1. NAPROXEN SODIUM [Suspect]
     Active Substance: NAPROXEN\NAPROXEN SODIUM
     Indication: Spinal osteoarthritis
     Dosage: 500 MILLIGRAM, ONCE A DAY
     Route: 065
     Dates: start: 20220621, end: 202208
  2. DEXAMETHASONE [Suspect]
     Active Substance: DEXAMETHASONE
     Indication: Spinal osteoarthritis
     Dosage: 4 MILLIGRAM, EVERY OTHER DAY
     Route: 065
     Dates: start: 20220621, end: 20220630
  3. ESOMEPRAZOLE [Concomitant]
     Active Substance: ESOMEPRAZOLE
     Indication: Product used for unknown indication
     Dosage: 40 MILLIGRAM, ONCE A DAY
     Route: 065
     Dates: start: 20220621

REACTIONS (1)
  - Hepatitis toxic [Recovering/Resolving]

NARRATIVE: CASE EVENT DATE: 20220816
